FAERS Safety Report 5694307-8 (Version None)
Quarter: 2008Q2

REPORT INFORMATION
  Report Type: 
  Country: None (occurrence: None)
  Receive Date: 20080402
  Receipt Date: 20080318
  Transmission Date: 20081010
  Serious: Yes (Other)
  Sender: FDA-Public Use
  Company Number: 2008000552

PATIENT
  Age: 50 Year
  Sex: Female

DRUGS (1)
  1. TARCEVA [Suspect]
     Indication: BRONCHIOLOALVEOLAR CARCINOMA
     Dosage: ORAL
     Route: 048

REACTIONS (5)
  - BIOPSY LIVER ABNORMAL [None]
  - GASTROINTESTINAL NEOPLASM [None]
  - HEPATIC NEOPLASM MALIGNANT [None]
  - HEPATITIS [None]
  - LIVER SCAN ABNORMAL [None]
